FAERS Safety Report 16933336 (Version 2)
Quarter: 2019Q4

REPORT INFORMATION
  Report Type: Spontaneous
  Country: US (occurrence: US)
  Receive Date: 20191018
  Receipt Date: 20191031
  Transmission Date: 20200122
  Serious: Yes (Death, Life-Threatening, Other)
  Sender: FDA-Public Use
  Company Number: US-AUROBINDO-AUR-APL-2019-066382

PATIENT
  Age: 59 Year
  Sex: Male

DRUGS (8)
  1. DEXAMETHASONE. [Suspect]
     Active Substance: DEXAMETHASONE
     Indication: ADENOCARCINOMA
     Dosage: UNK UNK, CYCLICAL, NEOADJUVANT CHEMOTHERAPY
     Route: 065
  2. BEVACIZUMAB. [Suspect]
     Active Substance: BEVACIZUMAB
     Dosage: NEOADJUVANT CHEMOTHERAPY
  3. CISPLATIN. [Suspect]
     Active Substance: CISPLATIN
     Indication: ADENOCARCINOMA
     Dosage: UNK UNK, CYCLICAL,NEOADJUVANT CHEMOTHERAPY
     Route: 065
  4. EPIRUBICIN [Suspect]
     Active Substance: EPIRUBICIN
     Indication: ADENOCARCINOMA
     Dosage: UNK UNK, CYCLICAL,NEOADJUVANT CHEMOTHERAPY
     Route: 065
  5. BEVACIZUMAB. [Suspect]
     Active Substance: BEVACIZUMAB
     Indication: ADENOCARCINOMA
     Dosage: UNK UNK, 3CYCLES
     Route: 065
  6. DOCETAXEL. [Suspect]
     Active Substance: DOCETAXEL
     Indication: ADENOCARCINOMA
     Dosage: UNK, 3 CYCLES
     Route: 065
  7. IRINOTECAN [Suspect]
     Active Substance: IRINOTECAN
     Indication: ADENOCARCINOMA
     Dosage: UNK, 3 CYCLES
     Route: 065
  8. CAPECITABINE. [Suspect]
     Active Substance: CAPECITABINE
     Indication: ADENOCARCINOMA
     Dosage: UNK UNK, CYCLICAL, NEOADJUVANT CHEMOTHERAPY
     Route: 065

REACTIONS (10)
  - Vascular pseudoaneurysm [Unknown]
  - Hypotension [Unknown]
  - Hypoxia [Unknown]
  - Idiosyncratic drug reaction [Unknown]
  - Ulcer [Recovered/Resolved]
  - Haemoptysis [Fatal]
  - Mucosal inflammation [Unknown]
  - Thrombosis [Unknown]
  - Cardio-respiratory arrest [Fatal]
  - Hypersensitivity [Unknown]
